FAERS Safety Report 10238533 (Version 1)
Quarter: 2014Q2

REPORT INFORMATION
  Report Type: Spontaneous
  Country: JP (occurrence: JP)
  Receive Date: 20140616
  Receipt Date: 20140616
  Transmission Date: 20141212
  Serious: Yes (Other)
  Sender: FDA-Public Use
  Company Number: JP-MYLANLABS-2014S1013725

PATIENT
  Age: 36 Year
  Sex: Female

DRUGS (8)
  1. ACETYLSALICYLIC ACID [Suspect]
     Indication: SYSTEMIC LUPUS ERYTHEMATOSUS
     Route: 048
  2. ACETYLSALICYLIC ACID [Suspect]
     Indication: ANTIPHOSPHOLIPID SYNDROME
     Route: 048
  3. PREDNISOLONE [Suspect]
     Indication: SYSTEMIC LUPUS ERYTHEMATOSUS
     Route: 048
  4. PREDNISOLONE [Suspect]
     Indication: ANTIPHOSPHOLIPID SYNDROME
     Route: 048
  5. HEPARIN [Concomitant]
     Indication: SYSTEMIC LUPUS ERYTHEMATOSUS
     Route: 042
  6. HEPARIN [Concomitant]
     Indication: ANTIPHOSPHOLIPID SYNDROME
     Route: 042
  7. IMMUNOGLOBULIN /07494701/ [Concomitant]
     Indication: SYSTEMIC LUPUS ERYTHEMATOSUS
     Route: 042
  8. IMMUNOGLOBULIN /07494701/ [Concomitant]
     Indication: ANTIPHOSPHOLIPID SYNDROME

REACTIONS (5)
  - Exposure during pregnancy [Unknown]
  - Hepatic function abnormal [Unknown]
  - Blood pressure increased [Unknown]
  - Renal impairment [Unknown]
  - Foetal growth restriction [Unknown]
